FAERS Safety Report 8966297 (Version 1)
Quarter: 2012Q4

REPORT INFORMATION
  Report Type: 
  Country: US (occurrence: US)
  Receive Date: 20121217
  Receipt Date: 20121217
  Transmission Date: 20130627
  Serious: Yes (Other)
  Sender: FDA-Public Use
  Company Number: PHEH2012US022804

PATIENT
  Age: 5 Year
  Sex: Female

DRUGS (1)
  1. ILARIS [Suspect]
     Indication: MUCKLE-WELLS SYNDROME

REACTIONS (3)
  - Haematochezia [Recovering/Resolving]
  - Colitis [Unknown]
  - Ulcer [Unknown]
